FAERS Safety Report 10731977 (Version 2)
Quarter: 2015Q1

REPORT INFORMATION
  Report Type: Spontaneous
  Country: TR (occurrence: TR)
  Receive Date: 20150123
  Receipt Date: 20150203
  Transmission Date: 20150721
  Serious: Yes (Other)
  Sender: FDA-Public Use
  Company Number: TR-RANBAXY-2015RR-91771

PATIENT
  Age: 25 Year
  Sex: Male

DRUGS (2)
  1. ISOTRETINOIN [Suspect]
     Active Substance: ISOTRETINOIN
     Indication: ACNE FULMINANS
     Dosage: 20 MG, DAILY
     Route: 065
  2. ISOTRETINOIN [Suspect]
     Active Substance: ISOTRETINOIN
     Indication: ACNE FULMINANS
     Dosage: 40 MG, DAILY
     Route: 065

REACTIONS (2)
  - Demyelinating polyneuropathy [Recovered/Resolved]
  - Sacroiliitis [Recovered/Resolved]
